FAERS Safety Report 16386190 (Version 3)
Quarter: 2019Q2

REPORT INFORMATION
  Report Type: Spontaneous
  Country: JP (occurrence: JP)
  Receive Date: 20190603
  Receipt Date: 20190603
  Transmission Date: 20190711
  Serious: Yes (Death, Hospitalization)
  Sender: FDA-Public Use
  Company Number: PHHY2019JP126826

PATIENT
  Age: 77 Year
  Sex: Female

DRUGS (3)
  1. METHYLPREDNISOLONE. [Suspect]
     Active Substance: METHYLPREDNISOLONE
     Indication: OPTIC ISCHAEMIC NEUROPATHY
     Dosage: 500 MG, UNK
     Route: 042
  2. METHYLPREDNISOLONE. [Suspect]
     Active Substance: METHYLPREDNISOLONE
     Dosage: 1000 MG, QD, FOR 3 DAYS
     Route: 042
  3. PREDNISOLONE. [Suspect]
     Active Substance: PREDNISOLONE
     Indication: OPTIC ISCHAEMIC NEUROPATHY
     Dosage: 0.5 MG/KG, UNK
     Route: 065

REACTIONS (4)
  - Product use in unapproved indication [Unknown]
  - Blindness unilateral [Unknown]
  - Aspergillus infection [Fatal]
  - Subarachnoid haemorrhage [Fatal]
